FAERS Safety Report 7969134-9 (Version None)
Quarter: 2011Q4

REPORT INFORMATION
  Report Type: 
  Country: None (occurrence: None)
  Receive Date: 20111209
  Receipt Date: 20111130
  Transmission Date: 20120403
  Serious: Yes (Disabling)
  Sender: FDA-Public Use
  Company Number: US-ELI_LILLY_AND_COMPANY-US201112000676

PATIENT
  Sex: Male

DRUGS (4)
  1. HUMULIN N [Suspect]
  2. HUMALOG [Suspect]
     Indication: DIABETES MELLITUS
  3. HUMULIN R [Suspect]
  4. LANTUS [Concomitant]
     Dosage: UNK

REACTIONS (1)
  - ACCIDENT AT WORK [None]
